FAERS Safety Report 19310758 (Version 1)
Quarter: 2021Q2

REPORT INFORMATION
  Report Type: Spontaneous
  Country: US (occurrence: US)
  Receive Date: 20210526
  Receipt Date: 20210526
  Transmission Date: 20210717
  Serious: No
  Sender: FDA-Public Use
  Company Number: NVSC2021US117848

PATIENT
  Sex: Female

DRUGS (2)
  1. NEURO [Concomitant]
     Indication: PRODUCT USED FOR UNKNOWN INDICATION
     Dosage: UNK
     Route: 065
  2. XIIDRA [Suspect]
     Active Substance: LIFITEGRAST
     Indication: PRODUCT USED FOR UNKNOWN INDICATION
     Dosage: 5 %, BID
     Route: 065

REACTIONS (4)
  - Foreign body sensation in eyes [Unknown]
  - Product contamination physical [Unknown]
  - Eye irritation [Unknown]
  - Drug ineffective [Unknown]
